FAERS Safety Report 4546683-7 (Version None)
Quarter: 2005Q1

REPORT INFORMATION
  Report Type: 
  Country: None (occurrence: None)
  Receive Date: 20050105
  Receipt Date: 20041222
  Transmission Date: 20050727
  Serious: Yes (Hospitalization)
  Sender: FDA-Public Use
  Company Number: 9560

PATIENT
  Age: 77 Year
  Sex: Female

DRUGS (17)
  1. LEUCOVORIN [Suspect]
     Indication: METASTASES TO LIVER
     Dosage: 75 MG PO
     Route: 048
     Dates: start: 20040719, end: 20040815
  2. LEUCOVORIN [Suspect]
     Indication: METASTASES TO LUNG
     Dosage: 75 MG PO
     Route: 048
     Dates: start: 20040719, end: 20040815
  3. LEUCOVORIN [Suspect]
     Indication: RENAL CELL CARCINOMA STAGE UNSPECIFIED
     Dosage: 75 MG PO
     Route: 048
     Dates: start: 20040719, end: 20040815
  4. LEUCOVORIN [Suspect]
     Indication: METASTASES TO LIVER
     Dosage: 75 MG PO
     Route: 048
     Dates: start: 20040823, end: 20040919
  5. LEUCOVORIN [Suspect]
     Indication: METASTASES TO LUNG
     Dosage: 75 MG PO
     Route: 048
     Dates: start: 20040823, end: 20040919
  6. LEUCOVORIN [Suspect]
     Indication: RENAL CELL CARCINOMA STAGE UNSPECIFIED
     Dosage: 75 MG PO
     Route: 048
     Dates: start: 20040823, end: 20040919
  7. TEGAFUR URACIL [Suspect]
     Indication: RECTAL CANCER
     Dosage: PO
     Route: 048
     Dates: start: 20040719, end: 20040815
  8. TEGAFUR URACIL [Suspect]
     Indication: RECTAL CANCER
     Dosage: PO
     Route: 048
     Dates: start: 20040823, end: 20040919
  9. ENZYMES NOS [Concomitant]
  10. REBAMIPIDE [Concomitant]
  11. FAMOTIDINE [Concomitant]
  12. AMBROXOL HYDROCHLORIDE [Concomitant]
  13. FERROUS CITRATE [Concomitant]
  14. BROTIZOLAM [Concomitant]
  15. SULPIRIDE [Concomitant]
  16. MAGNESIUM OXIDE [Concomitant]
  17. TRANSFUSION FLUID [Concomitant]

REACTIONS (1)
  - INFECTIVE SPONDYLITIS [None]
